FAERS Safety Report 23430079 (Version 1)
Quarter: 2024Q1

REPORT INFORMATION
  Report Type: Report from Study
  Country: US (occurrence: US)
  Receive Date: 20240122
  Receipt Date: 20240122
  Transmission Date: 20240410
  Serious: Yes (Hospitalization, Other)
  Sender: FDA-Public Use
  Company Number: US-ACADIA PHARMACEUTICALS INC.-ACA-2024-PIM-000192

PATIENT
  Sex: Male

DRUGS (23)
  1. NUPLAZID [Suspect]
     Active Substance: PIMAVANSERIN TARTRATE
     Indication: Parkinson^s disease
     Dosage: 34 MILLIGRAM, QD
     Route: 048
     Dates: start: 201902
  2. ALBUTEROL SULFATE [Concomitant]
     Active Substance: ALBUTEROL SULFATE
  3. POTASSIUM [Concomitant]
     Active Substance: POTASSIUM
  4. KEPPRA XR [Concomitant]
     Active Substance: LEVETIRACETAM
  5. CLONAZEPAM [Concomitant]
     Active Substance: CLONAZEPAM
  6. NYSTATIN [Concomitant]
     Active Substance: NYSTATIN
  7. VITAMIN D NOS [Concomitant]
     Active Substance: VITAMIN D NOS
  8. MAGNESIUM [Concomitant]
     Active Substance: MAGNESIUM
  9. GLIPIZIDE [Concomitant]
     Active Substance: GLIPIZIDE
  10. LASIX [Concomitant]
     Active Substance: FUROSEMIDE
  11. ASPIRIN [Concomitant]
     Active Substance: ASPIRIN
  12. LISINOPRIL [Concomitant]
     Active Substance: LISINOPRIL
  13. FIBER LAX [Concomitant]
     Active Substance: CALCIUM POLYCARBOPHIL
  14. LEVOTHYROXINE [Concomitant]
     Active Substance: LEVOTHYROXINE\LEVOTHYROXINE SODIUM
  15. FARXIGA [Concomitant]
     Active Substance: DAPAGLIFLOZIN PROPANEDIOL
  16. SEROQUEL [Concomitant]
     Active Substance: QUETIAPINE FUMARATE
  17. FAMOTIDINE [Concomitant]
     Active Substance: FAMOTIDINE
  18. ATORVASTATIN CALCIUM [Concomitant]
     Active Substance: ATORVASTATIN CALCIUM
  19. COLACE [Concomitant]
     Active Substance: DOCUSATE SODIUM
  20. FLUOCINOLONE ACETONIDE [Concomitant]
     Active Substance: FLUOCINOLONE ACETONIDE
  21. XARELTO [Concomitant]
     Active Substance: RIVAROXABAN
  22. CARBIDOPA, LEVODOPA AND ENTACAPONE [Concomitant]
     Active Substance: CARBIDOPA\ENTACAPONE\LEVODOPA
  23. SENNA S [DOCUSATE SODIUM;SENNA ALEXANDRINA] [Concomitant]

REACTIONS (9)
  - Pneumonia aspiration [Unknown]
  - Pneumonia aspiration [Unknown]
  - Infection [Unknown]
  - Unresponsive to stimuli [Unknown]
  - Dysphagia [Unknown]
  - Insomnia [Unknown]
  - Product dose omission issue [Unknown]
  - Rash [Unknown]
  - Rash [Unknown]
